FAERS Safety Report 10056129 (Version 1)
Quarter: 2014Q2

REPORT INFORMATION
  Report Type: Spontaneous
  Country: US (occurrence: None)
  Receive Date: 20140401
  Receipt Date: 20140401
  Transmission Date: 20141212
  Serious: Yes (Hospitalization)
  Sender: FDA-Public Use
  Company Number: QSC-2014-0179

PATIENT
  Age: 48 Year
  Sex: Male

DRUGS (1)
  1. H.P. ACTHAR GEL [Suspect]
     Indication: MULTIPLE SCLEROSIS
     Dates: start: 20140310, end: 201403

REACTIONS (3)
  - Incorrect route of drug administration [None]
  - Anxiety [None]
  - Heart rate increased [None]
